FAERS Safety Report 24743118 (Version 1)
Quarter: 2024Q4

REPORT INFORMATION
  Report Type: Spontaneous
  Country: KR (occurrence: KR)
  Receive Date: 20241217
  Receipt Date: 20241217
  Transmission Date: 20250114
  Serious: Yes (Hospitalization)
  Sender: KOWA PHARM
  Company Number: KR-KOWA-24JP002934

PATIENT
  Age: 61 Year
  Sex: Female

DRUGS (1)
  1. EZETIMIBE\PITAVASTATIN CALCIUM [Suspect]
     Active Substance: EZETIMIBE\PITAVASTATIN CALCIUM
     Indication: Product used for unknown indication
     Dosage: UNK, UNK
     Route: 048
     Dates: start: 202411

REACTIONS (4)
  - Myalgia [Recovered/Resolved]
  - Abdominal distension [Not Recovered/Not Resolved]
  - Pruritus [Recovered/Resolved]
  - Dyspepsia [Not Recovered/Not Resolved]
